FAERS Safety Report 18490891 (Version 2)
Quarter: 2020Q4

REPORT INFORMATION
  Report Type: Report from Study
  Country: IT (occurrence: IT)
  Receive Date: 20201111
  Receipt Date: 20201118
  Transmission Date: 20210114
  Serious: Yes (Other)
  Sender: FDA-Public Use
  Company Number: IT-PFIZER INC-2020437826

PATIENT

DRUGS (1)
  1. GEMZAR [Suspect]
     Active Substance: GEMCITABINE HYDROCHLORIDE
     Indication: NON-SMALL CELL LUNG CANCER
     Dosage: UNK, CYCLIC (10MG/M2/MIN FOR 150 MIN) (INFUSION)
     Route: 042

REACTIONS (1)
  - Cerebrovascular accident [Unknown]
